FAERS Safety Report 10338539 (Version 1)
Quarter: 2014Q3

REPORT INFORMATION
  Report Type: Spontaneous
  Country: FR (occurrence: None)
  Receive Date: 20140721
  Receipt Date: 20140721
  Transmission Date: 20150326
  Serious: Yes (Life-Threatening)
  Sender: FDA-Public Use
  Company Number: FR-016284

PATIENT
  Age: 87 Year
  Sex: Male

DRUGS (5)
  1. MODURETIC 5-50 [Concomitant]
     Active Substance: AMILORIDE HYDROCHLORIDE\HYDROCHLOROTHIAZIDE
  2. BISOPROLOL [Concomitant]
     Active Substance: BISOPROLOL
  3. HEMIGOXINE [Concomitant]
     Active Substance: DIGOXIN
  4. FIRMAGON [Suspect]
     Active Substance: DEGARELIX ACETATE
     Indication: BENIGN PROSTATIC HYPERPLASIA
     Dates: start: 20140531, end: 20140531
  5. KARDEGIC [Concomitant]
     Active Substance: ASPIRIN LYSINE

REACTIONS (3)
  - Gait disturbance [None]
  - Ischaemic stroke [None]
  - Aphasia [None]

NARRATIVE: CASE EVENT DATE: 20140701
